FAERS Safety Report 6092810-2 (Version None)
Quarter: 2009Q1

REPORT INFORMATION
  Report Type: 
  Country: None (occurrence: None)
  Receive Date: 20090225
  Receipt Date: 20090212
  Transmission Date: 20090719
  Serious: Yes (Hospitalization)
  Sender: FDA-Public Use
  Company Number: DE-ROCHE-612054

PATIENT
  Age: 48 Year
  Sex: Male
  Weight: 85.5 kg

DRUGS (19)
  1. VALCYTE [Suspect]
     Dosage: FREQUENCY ALTERNATELY 1 PER 1 DAY AND 2 PER 1 DAY.
     Route: 048
     Dates: start: 20090123, end: 20090202
  2. VALCYTE [Suspect]
     Dosage: REPORTED THAT STOP OF COMMERCIAL VALCYTE ON 08 FEB 2009.
     Route: 048
     Dates: end: 20090208
  3. NEPHROTRANS [Concomitant]
  4. METOCLOPRAMIDE HYDROCHLORIDE [Concomitant]
  5. PREDNISOLONE [Concomitant]
  6. PROGRAF [Concomitant]
  7. METOPROLOL [Concomitant]
  8. COTRIM [Concomitant]
  9. MAGNESIUM VERLA [Concomitant]
  10. TOREM [Concomitant]
  11. ALLOPURINOL [Concomitant]
     Dosage: DRUG REPORTED AS: ALLOPURINOL 300
  12. CIPROFLOXACIN HCL [Concomitant]
     Dosage: DRUG REPORTED AS: CIPROBAY 500
  13. CELLCEPT [Concomitant]
  14. DELIX [Concomitant]
  15. PANTOPRAZOL [Concomitant]
  16. DECONTRIL [Concomitant]
  17. MAGNESIUM SULFATE [Concomitant]
  18. CARMEN [Concomitant]
  19. VIGANTOLETTEN [Concomitant]
     Dosage: DRUG REPORTED AS :VIGANTOLETTEN 10,000 IE; TDD: 10000 IE

REACTIONS (1)
  - LYMPH NODE TUBERCULOSIS [None]
